FAERS Safety Report 6402358-0 (Version None)
Quarter: 2009Q4

REPORT INFORMATION
  Report Type: 
  Country: None (occurrence: None)
  Receive Date: 20091015
  Receipt Date: 20091005
  Transmission Date: 20100525
  Serious: Yes (Other)
  Sender: FDA-Public Use
  Company Number: MX-ASTRAZENECA-2009SE18471

PATIENT
  Age: 30 Year

DRUGS (1)
  1. XYLODERM [Suspect]
     Route: 003

REACTIONS (1)
  - CATARACT [None]
